FAERS Safety Report 4829223-4 (Version None)
Quarter: 2005Q4

REPORT INFORMATION
  Report Type: 
  Country: None (occurrence: None)
  Receive Date: 20051028
  Receipt Date: 20050803
  Transmission Date: 20060501
  Serious: No
  Sender: FDA-Public Use
  Company Number: COT_0156_2005

PATIENT
  Age: 68 Year

DRUGS (9)
  1. VENTAVIS [Suspect]
     Indication: PULMONARY HYPERTENSION
  2. NIFEDIPINE [Concomitant]
  3. GLIPIZIDE [Concomitant]
  4. OXYCONTIN [Concomitant]
  5. LASIX [Concomitant]
  6. COUMADIN [Concomitant]
  7. TRACLEER [Concomitant]
  8. PREDNISONE [Concomitant]
  9. SILDENAFIL [Concomitant]

REACTIONS (1)
  - PRURITUS [None]
